FAERS Safety Report 15325055 (Version 3)
Quarter: 2020Q2

REPORT INFORMATION
  Report Type: Report from Study
  Country: US (occurrence: US)
  Receive Date: 20180828
  Receipt Date: 20200624
  Transmission Date: 20200713
  Serious: No
  Sender: FDA-Public Use
  Company Number: PHEH2018US035539

PATIENT
  Sex: Female

DRUGS (1)
  1. SIGNIFOR LAR [Suspect]
     Active Substance: PASIREOTIDE PAMOATE
     Indication: ACROMEGALY
     Dosage: 60 MG, Q4W
     Route: 030

REACTIONS (1)
  - Maternal exposure timing unspecified [Unknown]
